FAERS Safety Report 23129817 (Version 1)
Quarter: 2023Q4

REPORT INFORMATION
  Report Type: Spontaneous
  Country: US (occurrence: None)
  Receive Date: 20231030
  Receipt Date: 20231030
  Transmission Date: 20240109
  Serious: Yes (unspecified)
  Sender: FDA-Public Use
  Company Number: None

PATIENT
  Age: 58 Year
  Sex: Female
  Weight: 83.25 kg

DRUGS (8)
  1. EQUATE REDNESS AND DRY EYE RELIEF EYE DROPS [Suspect]
     Active Substance: GLYCERIN\NAPHAZOLINE HYDROCHLORIDE
     Indication: Ocular hyperaemia
     Dosage: OTHER QUANTITY : 4 DROP(S);?FREQUENCY : 4 TIMES A DAY;?
     Route: 047
     Dates: start: 20230901, end: 20231030
  2. EQUATE REDNESS AND DRY EYE RELIEF EYE DROPS [Suspect]
     Active Substance: GLYCERIN\NAPHAZOLINE HYDROCHLORIDE
     Indication: Dry eye
  3. LISINOPRIL [Concomitant]
  4. VENLAFAXINE [Concomitant]
  5. DOXYCYCLINE HYCLATE [Concomitant]
     Active Substance: DOXYCYCLINE HYCLATE
  6. erythromycin ointment (to treat eye infection) [Concomitant]
  7. Omega 3 Fish Oil [Concomitant]
  8. IBUPROFEN [Concomitant]
     Active Substance: IBUPROFEN

REACTIONS (1)
  - Hordeolum [None]

NARRATIVE: CASE EVENT DATE: 20231001
